FAERS Safety Report 10035737 (Version 2)
Quarter: 2014Q2

REPORT INFORMATION
  Report Type: Spontaneous
  Country: US (occurrence: US)
  Receive Date: 20140325
  Receipt Date: 20140527
  Transmission Date: 20141212
  Serious: Yes (Death, Hospitalization)
  Sender: FDA-Public Use
  Company Number: US-GLAXOSMITHKLINE-A1066407A

PATIENT
  Age: 56 Year
  Sex: Male

DRUGS (2)
  1. AVANDAMET [Suspect]
     Indication: DIABETES MELLITUS
     Route: 048
     Dates: start: 200406, end: 200511
  2. AVANDIA [Suspect]
     Indication: DIABETES MELLITUS
     Dosage: 4MG TWICE PER DAY
     Route: 048
     Dates: start: 20050415, end: 200903

REACTIONS (7)
  - Pulmonary embolism [Fatal]
  - Right ventricular failure [Unknown]
  - Shock [Unknown]
  - Cardiac arrest [Unknown]
  - Ventricular tachycardia [Unknown]
  - Bradyarrhythmia [Unknown]
  - Supraventricular tachycardia [Unknown]
